FAERS Safety Report 6026562-9 (Version None)
Quarter: 2009Q1

REPORT INFORMATION
  Report Type: 
  Country: None (occurrence: None)
  Receive Date: 20090102
  Receipt Date: 20081223
  Transmission Date: 20090719
  Serious: Yes (Hospitalization)
  Sender: FDA-Public Use
  Company Number: US-ABBOTT-08P-163-0494659-00

PATIENT
  Sex: Female
  Weight: 70.37 kg

DRUGS (3)
  1. HUMIRA [Suspect]
     Indication: CROHN'S DISEASE
     Route: 058
     Dates: start: 20081110, end: 20081223
  2. HUMIRA [Suspect]
     Route: 058
     Dates: start: 20080501, end: 20080501
  3. BIRTH CONTROL PILLS [Concomitant]
     Indication: DRUG USE FOR UNKNOWN INDICATION

REACTIONS (10)
  - ABDOMINAL ADHESIONS [None]
  - ABDOMINAL PAIN [None]
  - COLD SWEAT [None]
  - CROHN'S DISEASE [None]
  - DIARRHOEA [None]
  - DRUG HYPERSENSITIVITY [None]
  - NAUSEA [None]
  - RASH [None]
  - RASH PAPULAR [None]
  - URTICARIA [None]
